FAERS Safety Report 5880058-3 (Version None)
Quarter: 2008Q3

REPORT INFORMATION
  Report Type: 
  Country: None (occurrence: None)
  Receive Date: 20080912
  Receipt Date: 20080902
  Transmission Date: 20090109
  Serious: Yes (Hospitalization)
  Sender: FDA-Public Use
  Company Number: US-PFIZER INC-2008066686

PATIENT
  Sex: Female
  Weight: 77.1 kg

DRUGS (17)
  1. CHANTIX [Suspect]
     Indication: SMOKING CESSATION THERAPY
     Dates: start: 20080805
  2. VALIUM [Concomitant]
  3. ALBUTEROL [Concomitant]
  4. ALBUTEROL [Concomitant]
  5. LEVOXYL [Concomitant]
     Indication: THYROID DISORDER
  6. PIOGLITAZONE [Concomitant]
     Indication: DIABETES MELLITUS
  7. ALLEGRA [Concomitant]
  8. PRILOSEC [Concomitant]
  9. MUCINEX [Concomitant]
  10. ASTELIN [Concomitant]
  11. PULMICORT-100 [Concomitant]
  12. PULMICORT-100 [Concomitant]
  13. LEXAPRO [Concomitant]
  14. SPIRIVA [Concomitant]
  15. PREDNISONE TAB [Concomitant]
  16. DIAZEPAM [Concomitant]
  17. LEVAQUIN [Concomitant]

REACTIONS (2)
  - INCORRECT DOSE ADMINISTERED [None]
  - OROPHARYNGEAL PAIN [None]
